FAERS Safety Report 6738307-5 (Version None)
Quarter: 2010Q2

REPORT INFORMATION
  Report Type: 
  Country: None (occurrence: None)
  Receive Date: 20100524
  Receipt Date: 20100518
  Transmission Date: 20101027
  Serious: Yes (Life-Threatening, Hospitalization)
  Sender: FDA-Public Use
  Company Number: CA-MERCK-1005USA02638

PATIENT
  Age: 73 Year
  Sex: Female
  Weight: 80 kg

DRUGS (3)
  1. HYZAAR [Suspect]
     Route: 048
  2. FOSAMAX PLUS D [Concomitant]
     Route: 048
  3. ASPIRIN [Concomitant]
     Route: 065

REACTIONS (4)
  - ACUTE CORONARY SYNDROME [None]
  - PNEUMONIA [None]
  - PULMONARY OEDEMA [None]
  - TOXIC SHOCK SYNDROME [None]
